FAERS Safety Report 6725457-2 (Version None)
Quarter: 2010Q2

REPORT INFORMATION
  Report Type: 
  Country: None (occurrence: None)
  Receive Date: 20100513
  Receipt Date: 20100513
  Transmission Date: 20101027
  Serious: No
  Sender: FDA-Public Use
  Company Number: None

PATIENT
  Sex: Female
  Weight: 179.6244 kg

DRUGS (6)
  1. ACYCLOVIR [Suspect]
     Indication: HERPES VIRUS INFECTION
     Dosage: ONE TAB 3TIMES DAILY 3 TIMES
     Dates: start: 20100423
  2. ACYCLOVIR [Suspect]
     Indication: HERPES ZOSTER
     Dosage: ONE TAB 3TIMES DAILY 3 TIMES
     Dates: start: 20100423
  3. ACYCLOVIR [Suspect]
     Indication: PAIN
     Dosage: ONE TAB 3TIMES DAILY 3 TIMES
     Dates: start: 20100423
  4. ACYCLOVIR [Suspect]
     Indication: VIRAL INFECTION
     Dosage: ONE TAB 3TIMES DAILY 3 TIMES
     Dates: start: 20100423
  5. BUTALBITAL ACETAMINOPHEN AND CAFFEINE [Suspect]
     Indication: HEADACHE
     Dosage: 1 TAB EVERY 4 HOURS
  6. BUTALBITAL ACETAMINOPHEN AND CAFFEINE [Suspect]
     Indication: NECK PAIN
     Dosage: 1 TAB EVERY 4 HOURS

REACTIONS (1)
  - UNEVALUABLE EVENT [None]
